FAERS Safety Report 7970143-4 (Version None)
Quarter: 2011Q4

REPORT INFORMATION
  Report Type: 
  Country: None (occurrence: None)
  Receive Date: 20111212
  Receipt Date: 20111209
  Transmission Date: 20120403
  Serious: Yes (Hospitalization)
  Sender: FDA-Public Use
  Company Number: IT-SANOFI-AVENTIS-2011SA079863

PATIENT
  Age: 79 Year
  Sex: Male

DRUGS (3)
  1. ASPIRIN [Suspect]
     Route: 048
     Dates: start: 20111004, end: 20111025
  2. PLAVIX [Suspect]
     Route: 048
     Dates: start: 20111004, end: 20111025
  3. PANTOPRAZOLE [Concomitant]
     Route: 048
     Dates: start: 20111004, end: 20111025

REACTIONS (2)
  - ANAEMIA [None]
  - RECTAL HAEMORRHAGE [None]
